FAERS Safety Report 25690312 (Version 1)
Quarter: 2025Q3

REPORT INFORMATION
  Report Type: Spontaneous
  Country: US (occurrence: None)
  Receive Date: 20250815
  Receipt Date: 20250815
  Transmission Date: 20251021
  Serious: Yes (Hospitalization)
  Sender: FDA-CTU
  Company Number: None

PATIENT
  Age: 54 Year
  Sex: Male

DRUGS (17)
  1. OCTREOTIDE [Suspect]
     Active Substance: OCTREOTIDE
     Indication: Arteriovenous malformation
  2. ALBUTEROL HFA INH (200 PUFFS) 6.7GM [Concomitant]
  3. ALLOPURINOL 100MG TABLETS [Concomitant]
  4. AMLODIPINE BESYLATE [Concomitant]
     Active Substance: AMLODIPINE BESYLATE
  5. AURYXIA 210MG TABLETS [Concomitant]
  6. BUDESONIDE/FORM 160/4.5MCG(120 INH) [Concomitant]
  7. CARVEDILOL 25MG TABLETS [Concomitant]
  8. CLONIDINE [Concomitant]
     Active Substance: CLONIDINE
  9. FERROUS SULFATE 325MG (5GR) TABS [Concomitant]
  10. FLUTICASONE ALLERGY NASAL 50MCG SP [Concomitant]
  11. FUROSEMIDE B0MC TABLETS [Concomitant]
  12. LOSARTAN 100MC TABLETS [Concomitant]
  13. ONDANSETRON 4MC TABLETS [Concomitant]
  14. PANTOPRAZOLE [Concomitant]
     Active Substance: PANTOPRAZOLE
  15. RENAL SOFTGEL CAPSULES [Concomitant]
  16. RETACRIT 10,000UNT INJ, 1ML [Concomitant]
  17. SEVELAMER BOO MG HCL TABLETS [Concomitant]
     Indication: Arteriovenous malformation
     Dosage: FREQUENCY : TWICE A DAY;?
     Route: 058
     Dates: start: 20250512

REACTIONS (1)
  - Anaemia [None]

NARRATIVE: CASE EVENT DATE: 20250811
